FAERS Safety Report 11000101 (Version 2)
Quarter: 2015Q2

REPORT INFORMATION
  Report Type: Spontaneous
  Country: US (occurrence: US)
  Receive Date: 20150408
  Receipt Date: 20150505
  Transmission Date: 20150821
  Serious: Yes (Hospitalization, Congenital Anomaly, Other)
  Sender: FDA-Public Use
  Company Number: US-ELI_LILLY_AND_COMPANY-US201503010403

PATIENT

DRUGS (11)
  1. PEPCID [Concomitant]
     Active Substance: FAMOTIDINE
     Route: 064
  2. HUMALOG [Concomitant]
     Active Substance: INSULIN LISPRO
     Dosage: 8 U, EACH MORNING
  3. HUMALOG [Concomitant]
     Active Substance: INSULIN LISPRO
     Dosage: 4 U, EACH EVENING
  4. PROZAC [Suspect]
     Active Substance: FLUOXETINE HYDROCHLORIDE
     Indication: DEPRESSION
     Dosage: 20 MG, QD
     Route: 064
     Dates: start: 20041208
  5. HUMALOG [Concomitant]
     Active Substance: INSULIN LISPRO
     Indication: TYPE 2 DIABETES MELLITUS
     Dosage: 5 U, EACH MORNING
     Route: 064
  6. HUMULIN N [Concomitant]
     Active Substance: INSULIN HUMAN
     Dosage: 4 U, EACH EVENING
  7. MAGNES SULF [Concomitant]
     Indication: PRE-ECLAMPSIA
     Route: 064
  8. HUMULIN N [Concomitant]
     Active Substance: INSULIN HUMAN
     Dosage: 7 U, EACH EVENING
  9. HUMULIN N [Concomitant]
     Active Substance: INSULIN HUMAN
     Indication: TYPE 2 DIABETES MELLITUS
     Dosage: 5 U, EACH MORNING
  10. LEXAPRO [Concomitant]
     Active Substance: ESCITALOPRAM OXALATE
     Route: 064
  11. PRENATAL                           /00231801/ [Concomitant]
     Route: 064

REACTIONS (7)
  - Talipes [Recovered/Resolved]
  - Hypospadias [Recovered/Resolved]
  - Foetal exposure during pregnancy [Recovered/Resolved]
  - Hyperbilirubinaemia [Recovering/Resolving]
  - Exposure during breast feeding [Unknown]
  - Congenital heart valve disorder [Recovered/Resolved]
  - Congenital nose malformation [Unknown]
